FAERS Safety Report 25887462 (Version 1)
Quarter: 2025Q4

REPORT INFORMATION
  Report Type: Spontaneous
  Country: US (occurrence: US)
  Receive Date: 20251006
  Receipt Date: 20251006
  Transmission Date: 20260118
  Serious: No
  Sender: Haleon PLC
  Company Number: US-HALEON-2262372

PATIENT
  Age: 68 Year
  Sex: Female

DRUGS (1)
  1. GAS-X MAXIMUM STRENGTH SOFTGELS [Suspect]
     Active Substance: DIMETHICONE
     Indication: Flatulence
     Dates: start: 20250907, end: 20250908

REACTIONS (1)
  - Illness [Recovered/Resolved]

NARRATIVE: CASE EVENT DATE: 20250907
